FAERS Safety Report 17890449 (Version 2)
Quarter: 2020Q2

REPORT INFORMATION
  Report Type: Spontaneous
  Country: CL (occurrence: CL)
  Receive Date: 20200612
  Receipt Date: 20200625
  Transmission Date: 20200714
  Serious: No
  Sender: FDA-Public Use
  Company Number: CL-PFIZER INC-2020223343

PATIENT
  Age: 30 Year
  Sex: Male

DRUGS (1)
  1. GENOTROPIN [Suspect]
     Active Substance: SOMATROPIN
     Indication: BRAIN NEOPLASM
     Dosage: UNK  REPORTED AS 15 YEARS AGO

REACTIONS (5)
  - Device use issue [Unknown]
  - Product dose omission [Unknown]
  - Device issue [Unknown]
  - Off label use [Unknown]
  - Product use in unapproved indication [Unknown]
